FAERS Safety Report 5806850-9 (Version None)
Quarter: 2008Q3

REPORT INFORMATION
  Report Type: 
  Country: None (occurrence: None)
  Receive Date: 20080711
  Receipt Date: 20080709
  Transmission Date: 20090109
  Serious: Yes (Death)
  Sender: FDA-Public Use
  Company Number: JP-BRISTOL-MYERS SQUIBB COMPANY-14127971

PATIENT
  Age: 58 Year
  Sex: Female

DRUGS (7)
  1. PARAPLATIN [Suspect]
     Indication: UTERINE CANCER
     Dosage: THERAPY START DATE-16OCT07
     Route: 041
     Dates: start: 20080129, end: 20080129
  2. TAXOL [Suspect]
     Indication: UTERINE CANCER
     Dosage: THERAPY START DATE-16OCT07
     Route: 041
     Dates: start: 20080129, end: 20080129
  3. KYTRIL [Concomitant]
     Dosage: DOSE: 16OCT07-29JAN08 INTRAVENOUS DRIP.
     Route: 048
     Dates: start: 20071017, end: 20080202
  4. EBRANTIL [Concomitant]
     Indication: DYSURIA
     Dosage: DOSAGE FORM= 1 CAPSULE.
     Route: 048
     Dates: start: 20070101
  5. DEXAMETHASONE SODIUM PHOSPHATE [Concomitant]
     Indication: PREMEDICATION
     Route: 042
     Dates: start: 20071016, end: 20080129
  6. DIPHENHYDRAMINE HCL [Concomitant]
     Indication: PREMEDICATION
     Route: 048
     Dates: start: 20071016, end: 20080129
  7. RANITIDINE HCL [Concomitant]
     Indication: PREMEDICATION
     Route: 042
     Dates: start: 20071016, end: 20080129

REACTIONS (1)
  - COMPLETED SUICIDE [None]
